FAERS Safety Report 6358916-5 (Version None)
Quarter: 2009Q3

REPORT INFORMATION
  Report Type: 
  Country: None (occurrence: None)
  Receive Date: 20090916
  Receipt Date: 20090825
  Transmission Date: 20100115
  Serious: No
  Sender: FDA-Public Use
  Company Number: US-ABBOTT-09P-163-0594682-00

PATIENT
  Sex: Male
  Weight: 90.346 kg

DRUGS (11)
  1. TRILIPIX [Suspect]
     Indication: DYSLIPIDAEMIA
     Dates: start: 20090501, end: 20090608
  2. ZOCOR [Suspect]
     Indication: DYSLIPIDAEMIA
     Dates: end: 20090608
  3. DILTIAZEM [Concomitant]
     Indication: HYPERLIPIDAEMIA
  4. ASPIRIN [Concomitant]
     Indication: CORONARY ARTERY DISEASE
  5. ALTACE [Concomitant]
     Indication: HYPERTENSION
  6. KEXAPRO [Concomitant]
     Indication: DEPRESSION
  7. FOLIC ACID [Concomitant]
     Indication: BLOOD HOMOCYSTEINE INCREASED
  8. WELLBUTRIN [Concomitant]
     Indication: DEPRESSION
  9. DOXAZOSIN [Concomitant]
     Indication: BENIGN PROSTATIC HYPERPLASIA
  10. PLAVIX [Concomitant]
     Indication: CORONARY ARTERIAL STENT INSERTION
  11. MILOXACAM [Concomitant]
     Indication: ARTHRITIS

REACTIONS (4)
  - CHROMATURIA [None]
  - MYALGIA [None]
  - MYOPATHY [None]
  - RHABDOMYOLYSIS [None]
